FAERS Safety Report 15710997 (Version 1)
Quarter: 2018Q4

REPORT INFORMATION
  Report Type: Report from Study
  Country: GB (occurrence: GB)
  Receive Date: 20181211
  Receipt Date: 20181211
  Transmission Date: 20190205
  Serious: Yes (Death)
  Sender: FDA-Public Use
  Company Number: GB-JNJFOC-20181141847

PATIENT
  Age: 81 Year
  Sex: Male

DRUGS (13)
  1. STELARA [Suspect]
     Active Substance: USTEKINUMAB
     Indication: PSORIASIS
     Route: 058
     Dates: start: 20180505
  2. WARFARIN [Concomitant]
     Active Substance: WARFARIN
     Dates: start: 20170808
  3. RABEPRAZOLE SODIUM. [Concomitant]
     Active Substance: RABEPRAZOLE SODIUM
     Dates: start: 20060206
  4. PRAVASTATIN. [Concomitant]
     Active Substance: PRAVASTATIN
     Dates: start: 20060330
  5. SODIUM BICARBONATE. [Concomitant]
     Active Substance: SODIUM BICARBONATE
     Dates: start: 20060331
  6. MOMETASONE [Concomitant]
     Active Substance: MOMETASONE
     Dates: start: 20150112
  7. ASPIRIN. [Concomitant]
     Active Substance: ASPIRIN
     Dates: start: 20051114
  8. STELARA [Suspect]
     Active Substance: USTEKINUMAB
     Indication: PSORIASIS
     Route: 058
     Dates: start: 20141014, end: 20151015
  9. AMITRIPTYLINE [Concomitant]
     Active Substance: AMITRIPTYLINE
     Dates: start: 20170808
  10. DOUBLEBASE [Concomitant]
     Active Substance: ISOPROPYL MYRISTATE\PARAFFIN
     Dates: start: 20150112
  11. FOLIC ACID. [Concomitant]
     Active Substance: FOLIC ACID
     Dates: start: 20060206
  12. FUCIBET [Concomitant]
     Dates: start: 20170808
  13. CETIRIZINE [Concomitant]
     Active Substance: CETIRIZINE HYDROCHLORIDE
     Dates: start: 20170808

REACTIONS (9)
  - Death [Fatal]
  - Open fracture [Unknown]
  - Pneumonia aspiration [Unknown]
  - Fall [Unknown]
  - Muscle haemorrhage [Unknown]
  - Fracture infection [Unknown]
  - Pubis fracture [Unknown]
  - Pneumonia [Unknown]
  - Toxicity to various agents [Unknown]

NARRATIVE: CASE EVENT DATE: 20181019
